FAERS Safety Report 6744283-1 (Version None)
Quarter: 2010Q2

REPORT INFORMATION
  Report Type: 
  Country: None (occurrence: None)
  Receive Date: 20100527
  Receipt Date: 20100524
  Transmission Date: 20101027
  Serious: Yes (Other)
  Sender: FDA-Public Use
  Company Number: US-MERCK-1004USA03973

PATIENT
  Age: 82 Year
  Sex: Female

DRUGS (2)
  1. FOSAMAX [Suspect]
     Route: 048
  2. RECLAST [Suspect]
     Route: 065

REACTIONS (2)
  - PELVIC FRACTURE [None]
  - THORACIC VERTEBRAL FRACTURE [None]
